FAERS Safety Report 19954825 (Version 4)
Quarter: 2021Q4

REPORT INFORMATION
  Report Type: Spontaneous
  Country: JP (occurrence: JP)
  Receive Date: 20211013
  Receipt Date: 20211207
  Transmission Date: 20220304
  Serious: Yes (Death, Life-Threatening)
  Sender: FDA-Public Use
  Company Number: JP-ABBVIE-21K-087-4118911-00

PATIENT
  Age: 80 Year
  Sex: Male
  Weight: 52 kg

DRUGS (12)
  1. RINVOQ [Suspect]
     Active Substance: UPADACITINIB
     Indication: Rheumatoid arthritis
     Route: 048
     Dates: start: 20210706, end: 20210813
  2. PREDNISOLONE [Suspect]
     Active Substance: PREDNISOLONE
     Indication: Rheumatoid arthritis
     Route: 048
     Dates: start: 20210709, end: 2021
  3. PREDNISOLONE [Suspect]
     Active Substance: PREDNISOLONE
     Dosage: DECREASED
     Route: 048
     Dates: start: 20210710, end: 20210716
  4. PREDNISOLONE [Suspect]
     Active Substance: PREDNISOLONE
     Dosage: DECREASED
     Route: 048
     Dates: start: 20210717, end: 20210730
  5. PREDNISOLONE [Suspect]
     Active Substance: PREDNISOLONE
     Dosage: DECREASED
     Route: 048
     Dates: start: 20210731, end: 20210831
  6. PREDNISOLONE [Concomitant]
     Active Substance: PREDNISOLONE
     Indication: Interstitial lung disease
     Route: 048
     Dates: start: 20210820, end: 20210831
  7. PREDNISOLONE [Concomitant]
     Active Substance: PREDNISOLONE
     Route: 048
     Dates: start: 20210901, end: 20210925
  8. AMLODIPINE BESYLATE [Concomitant]
     Active Substance: AMLODIPINE BESYLATE
     Indication: Hypertension
     Route: 048
     Dates: start: 20210831
  9. TELMISARTAN [Concomitant]
     Active Substance: TELMISARTAN
     Indication: Hypertension
     Route: 048
     Dates: start: 20210831
  10. ASPIRIN [Concomitant]
     Active Substance: ASPIRIN
     Indication: Angina pectoris
     Route: 048
     Dates: start: 20210831
  11. TAZOBACTAM [Concomitant]
     Active Substance: TAZOBACTAM
     Indication: Product used for unknown indication
     Dates: start: 20210813
  12. PIPERACILLIN [Concomitant]
     Active Substance: PIPERACILLIN
     Indication: Product used for unknown indication
     Dates: start: 20210813

REACTIONS (1)
  - Interstitial lung disease [Fatal]

NARRATIVE: CASE EVENT DATE: 20210813
